FAERS Safety Report 5428196-3 (Version None)
Quarter: 2007Q3

REPORT INFORMATION
  Report Type: 
  Country: None (occurrence: None)
  Receive Date: 20070828
  Receipt Date: 20070816
  Transmission Date: 20080115
  Serious: Yes (Other)
  Sender: FDA-Public Use
  Company Number: US-PFIZER INC-2007068619

PATIENT
  Sex: Female
  Weight: 103.4 kg

DRUGS (6)
  1. CHANTIX [Suspect]
     Indication: EX-SMOKER
  2. DILANTIN [Suspect]
     Indication: CONVULSION
  3. KEPPRA [Concomitant]
  4. TOPAMAX [Concomitant]
  5. KLONOPIN [Concomitant]
  6. PROZAC [Concomitant]

REACTIONS (3)
  - AURA [None]
  - CONVULSION [None]
  - DRUG HYPERSENSITIVITY [None]
